FAERS Safety Report 6880987-8 (Version None)
Quarter: 2010Q2

REPORT INFORMATION
  Report Type: 
  Country: None (occurrence: None)
  Receive Date: 20100630
  Receipt Date: 20100407
  Transmission Date: 20101027
  Serious: Yes (Other)
  Sender: FDA-Public Use
  Company Number: 2010024339

PATIENT
  Age: 71 Year
  Sex: Female
  Weight: 61.2 kg

DRUGS (3)
  1. ZITHROMAX [Suspect]
     Indication: RESPIRATORY TRACT INFECTION
     Dosage: 500 MG, 1X/DAY, ORAL
     Route: 048
     Dates: start: 20090820, end: 20090820
  2. IBANDRONATE SODIUM (BANDRONATE SODIUM) [Concomitant]
  3. VITAMIN D [Concomitant]

REACTIONS (3)
  - ABDOMINAL PAIN [None]
  - ANAL HAEMORRHAGE [None]
  - DIARRHOEA [None]
